FAERS Safety Report 20181451 (Version 2)
Quarter: 2022Q2

REPORT INFORMATION
  Report Type: Spontaneous
  Country: US (occurrence: US)
  Receive Date: 20211214
  Receipt Date: 20220422
  Transmission Date: 20220721
  Serious: No
  Sender: FDA-Public Use
  Company Number: US-PFIZER INC-202101223728

PATIENT
  Age: 73 Year
  Sex: Male

DRUGS (2)
  1. XELJANZ [Suspect]
     Active Substance: TOFACITINIB CITRATE
     Indication: Colitis ulcerative
     Dosage: 10 MG, 2X/DAY (TWICE DAILY)
     Route: 048
     Dates: start: 20210807
  2. XELJANZ [Suspect]
     Active Substance: TOFACITINIB CITRATE
     Dosage: 5 MG, 2X/DAY

REACTIONS (8)
  - Upper-airway cough syndrome [Not Recovered/Not Resolved]
  - Condition aggravated [Unknown]
  - Flatulence [Unknown]
  - Faeces hard [Unknown]
  - Nasal congestion [Unknown]
  - Acne [Unknown]
  - Rash macular [Unknown]
  - Off label use [Unknown]

NARRATIVE: CASE EVENT DATE: 20210801
